FAERS Safety Report 8328891-2 (Version None)
Quarter: 2012Q2

REPORT INFORMATION
  Report Type: 
  Country: None (occurrence: None)
  Receive Date: 20120502
  Receipt Date: 20120501
  Transmission Date: 20120825
  Serious: Yes (Death)
  Sender: FDA-Public Use
  Company Number: PHEH2012US009172

PATIENT
  Sex: Male

DRUGS (17)
  1. LASIX [Concomitant]
     Dosage: 20 MG, UNK
  2. FERREX [Concomitant]
  3. FLOMAX [Concomitant]
     Dosage: 0.4 MG, UNK
  4. AFINITOR [Suspect]
     Dosage: 10 MG, DAILY
     Route: 048
     Dates: start: 20110930
  5. CALCIUM [Concomitant]
  6. COREG [Concomitant]
  7. ENALAPRIL MALEATE [Concomitant]
     Dosage: 10 MG, UNK
  8. CORICIDIN [Concomitant]
  9. GLYBURIDE [Concomitant]
     Dosage: 1.25 MG, UNK
  10. AVANDIA [Concomitant]
     Dosage: 2 MG, UNK
  11. ALLOPURINOL [Concomitant]
     Dosage: 100 MG, UNK
  12. FAMOTIDINE [Concomitant]
  13. METOLAZONE [Concomitant]
     Dosage: 2.5 MG, UNK
  14. CADUET [Concomitant]
     Dosage: 10 MG, UNK
  15. ONDANSETRON [Concomitant]
  16. COLACE [Concomitant]
  17. TYLENOL (CAPLET) [Concomitant]

REACTIONS (1)
  - DEATH [None]
